FAERS Safety Report 24716771 (Version 2)
Quarter: 2024Q4

REPORT INFORMATION
  Report Type: Report from Study
  Country: CN (occurrence: CN)
  Receive Date: 20241210
  Receipt Date: 20241227
  Transmission Date: 20250115
  Serious: Yes (Hospitalization, Other)
  Sender: GILEAD
  Company Number: CN-GILEAD-2024-0696050

PATIENT
  Age: 36 Year
  Sex: Female

DRUGS (12)
  1. SACITUZUMAB GOVITECAN-HZIY [Suspect]
     Active Substance: SACITUZUMAB GOVITECAN-HZIY
     Indication: Breast cancer
     Dosage: 680 MG
     Route: 041
  2. SACITUZUMAB GOVITECAN-HZIY [Suspect]
     Active Substance: SACITUZUMAB GOVITECAN-HZIY
     Dosage: 720 MG
     Route: 041
     Dates: start: 20241029
  3. SACITUZUMAB GOVITECAN-HZIY [Suspect]
     Active Substance: SACITUZUMAB GOVITECAN-HZIY
     Dosage: 720MGC11D1
     Route: 041
     Dates: start: 20241109
  4. SACITUZUMAB GOVITECAN-HZIY [Suspect]
     Active Substance: SACITUZUMAB GOVITECAN-HZIY
     Dosage: 720MG D8
     Route: 041
     Dates: start: 20241129
  5. SACITUZUMAB GOVITECAN-HZIY [Suspect]
     Active Substance: SACITUZUMAB GOVITECAN-HZIY
     Dosage: 720MG D1
     Route: 041
     Dates: start: 20241213
  6. SACITUZUMAB GOVITECAN-HZIY [Suspect]
     Active Substance: SACITUZUMAB GOVITECAN-HZIY
     Dosage: 720MG D8
     Route: 041
     Dates: start: 20241220
  7. DENOSUMAB [Concomitant]
     Active Substance: DENOSUMAB
     Indication: Breast cancer
     Dosage: D1,8
     Route: 058
  8. PUCOTENLIMAB [Concomitant]
     Active Substance: PUCOTENLIMAB
     Indication: Breast cancer
     Dosage: 200 MG
     Route: 065
     Dates: start: 20241122
  9. PUCOTENLIMAB [Concomitant]
     Active Substance: PUCOTENLIMAB
     Dosage: 200 MG
     Route: 065
     Dates: start: 20241220
  10. BEVACIZUMAB [Concomitant]
     Active Substance: BEVACIZUMAB
     Indication: Breast cancer
     Dosage: 550 MG
     Route: 065
     Dates: start: 20241129
  11. BEVACIZUMAB [Concomitant]
     Active Substance: BEVACIZUMAB
     Dosage: 550 MG
     Route: 065
     Dates: start: 20241109
  12. BEVACIZUMAB [Concomitant]
     Active Substance: BEVACIZUMAB
     Dosage: 550 MG, D1
     Route: 065
     Dates: start: 20241213

REACTIONS (1)
  - Breast cancer metastatic [Unknown]
